FAERS Safety Report 9069002 (Version 2)
Quarter: 2013Q1

REPORT INFORMATION
  Report Type: Spontaneous
  Country: US (occurrence: US)
  Receive Date: 20130128
  Receipt Date: 20130215
  Transmission Date: 20140127
  Serious: Yes (Death, Other)
  Sender: FDA-Public Use
  Company Number: PHEH2013US002181

PATIENT
  Sex: Female

DRUGS (9)
  1. GILENYA [Suspect]
     Indication: MULTIPLE SCLEROSIS
     Dosage: 0.5 MG, QD
     Route: 048
     Dates: start: 20120316
  2. STEROIDS NOS [Suspect]
  3. SETRALIN [Concomitant]
  4. LEXAPRO [Concomitant]
  5. AMBIEN CR [Concomitant]
  6. GABAPENTIN [Concomitant]
  7. SINGULAIR [Concomitant]
  8. SIMVASTATIN [Concomitant]
  9. ENABLEX [Concomitant]

REACTIONS (2)
  - Death [Fatal]
  - Liver injury [Unknown]
